APPROVED DRUG PRODUCT: POSACONAZOLE
Active Ingredient: POSACONAZOLE
Strength: 100MG
Dosage Form/Route: TABLET, DELAYED RELEASE;ORAL
Application: A213454 | Product #001 | TE Code: AB
Applicant: AET PHARMA US INC
Approved: Feb 1, 2021 | RLD: No | RS: Yes | Type: RX